FAERS Safety Report 6534814-9 (Version None)
Quarter: 2010Q1

REPORT INFORMATION
  Report Type: 
  Country: None (occurrence: None)
  Receive Date: 20100112
  Receipt Date: 20100106
  Transmission Date: 20100710
  Serious: Yes (Hospitalization, Disabling)
  Sender: FDA-Public Use
  Company Number: JP-ABBOTT-09P-087-0597297-00

PATIENT
  Sex: Male

DRUGS (13)
  1. NORVIR [Suspect]
     Indication: HIV INFECTION
     Route: 048
     Dates: start: 20071013, end: 20081008
  2. EFAVIRENZ [Suspect]
     Indication: HIV INFECTION
     Route: 048
     Dates: start: 20071013, end: 20080925
  3. EMTRICITABINE AND TENOFOVIR DISOPROXIL FUMARATE [Suspect]
     Indication: HIV INFECTION
     Route: 048
     Dates: start: 20070926, end: 20081008
  4. DARUNAVIR [Suspect]
     Indication: HIV INFECTION
     Route: 048
     Dates: start: 20071013, end: 20081008
  5. RALTEGRAVIR [Suspect]
     Indication: HIV INFECTION
     Route: 048
     Dates: start: 20071013, end: 20081008
  6. ENFUVIRTIDE [Suspect]
     Indication: HIV INFECTION
     Route: 058
     Dates: start: 20071013, end: 20071110
  7. ENFUVIRTIDE [Suspect]
     Route: 058
     Dates: start: 20071013, end: 20071110
  8. SENNOSIDE [Concomitant]
     Indication: CONSTIPATION
     Route: 048
     Dates: start: 20081030
  9. SENNOSIDE [Concomitant]
     Indication: CONSTIPATION PROPHYLAXIS
  10. PENTAMIDINE ISETHIONATE [Concomitant]
     Indication: ANTIFUNGAL PROPHYLAXIS
     Route: 055
     Dates: start: 20090130, end: 20090130
  11. BROTIZOLAM [Concomitant]
     Indication: DRUG USE FOR UNKNOWN INDICATION
     Dates: start: 20080807, end: 20080828
  12. RISPERIDONE [Concomitant]
     Indication: DRUG USE FOR UNKNOWN INDICATION
     Dates: start: 20080807, end: 20080925
  13. VALPROATE SODIUM [Concomitant]
     Indication: DRUG USE FOR UNKNOWN INDICATION
     Dates: start: 20080528, end: 20090129

REACTIONS (2)
  - AIDS ENCEPHALOPATHY [None]
  - SUBDURAL HAEMATOMA [None]
